FAERS Safety Report 9218774 (Version 1)
Quarter: 2013Q2

REPORT INFORMATION
  Report Type: Spontaneous
  Country: PT (occurrence: PT)
  Receive Date: 20130409
  Receipt Date: 20130409
  Transmission Date: 20140414
  Serious: No
  Sender: FDA-Public Use
  Company Number: US-009507513-1304USA003529

PATIENT
  Age: 37 Year
  Sex: Female

DRUGS (1)
  1. MK-8415 [Suspect]
     Dosage: UNK
     Route: 059
     Dates: start: 20121010

REACTIONS (1)
  - Implant site pain [Not Recovered/Not Resolved]
